FAERS Safety Report 23667230 (Version 1)
Quarter: 2024Q1

REPORT INFORMATION
  Report Type: Spontaneous
  Country: QA (occurrence: QA)
  Receive Date: 20240325
  Receipt Date: 20240325
  Transmission Date: 20240410
  Serious: Yes (Hospitalization)
  Sender: FDA-Public Use
  Company Number: QA-002147023-NVSC2024QA060852

PATIENT

DRUGS (1)
  1. DICLOFENAC SODIUM [Suspect]
     Active Substance: DICLOFENAC\DICLOFENAC SODIUM
     Indication: Inflammation
     Dosage: UNK UNK, QD (2-3 PER DAYS)
     Route: 048

REACTIONS (2)
  - Oral mucosal eruption [Recovered/Resolved]
  - Genital rash [Recovered/Resolved]
